FAERS Safety Report 4392675-0 (Version None)
Quarter: 2004Q3

REPORT INFORMATION
  Report Type: 
  Country: None (occurrence: None)
  Receive Date: 20040702
  Receipt Date: 20040621
  Transmission Date: 20050211
  Serious: Yes (Hospitalization, Other)
  Sender: FDA-Public Use
  Company Number: 237763

PATIENT
  Age: 2 Day
  Sex: Male
  Weight: 4.7 kg

DRUGS (9)
  1. ACTRAPID PENFILL HM (GE) 3 ML (ACTRAPID PENFILL HM (GE) 3 ML)SOLUTION [Suspect]
     Indication: DIABETES MELLITUS INSULIN-DEPENDENT
     Dosage: 114 IU, IU, QD, INTRAUTERINE
     Route: 015
     Dates: start: 20031115
  2. INSULATARD HM PENFILL (INSULIN HUMAN)SUSPENSION FOR INJECTION [Concomitant]
  3. OXYGEN (OXYGEN) [Concomitant]
  4. CALCIUM GLUCONATE 9CALCIUM GLUCONATE) [Concomitant]
  5. NYSTATIN [Concomitant]
  6. AUGMENTIN  /UNKK/(CLAVULANATE POTASSIUM, AMOXICILLIN TRIHYDRATE) [Concomitant]
  7. AMIKIN [Concomitant]
  8. PLASMA [Concomitant]
  9. AMINOSTERIL (AMINO ACIDS NOS, VITAMINS NOS) [Concomitant]

REACTIONS (6)
  - DRUG EXPOSURE DURING PREGNANCY [None]
  - HYPOCALCAEMIA [None]
  - HYPOGLYCAEMIA NEONATAL [None]
  - MARKEDLY REDUCED DIETARY INTAKE [None]
  - NEONATAL DISORDER [None]
  - TREMOR NEONATAL [None]
